FAERS Safety Report 22276177 (Version 1)
Quarter: 2023Q2

REPORT INFORMATION
  Report Type: Spontaneous
  Country: US (occurrence: US)
  Receive Date: 20230502
  Receipt Date: 20230502
  Transmission Date: 20230722
  Serious: Yes (Other)
  Sender: FDA-Public Use
  Company Number: US-JNJFOC-20230463631

PATIENT
  Age: 51 Year
  Sex: Female

DRUGS (2)
  1. ELMIRON [Suspect]
     Active Substance: PENTOSAN POLYSULFATE SODIUM
     Indication: Cystitis interstitial
     Dosage: VARYING DOSES OF 100 MG, 2 TABLETS ORAL TWICE DAILY AND 1 TABLET TWICE DAILY.
     Route: 048
     Dates: end: 2017
  2. ELMIRON [Suspect]
     Active Substance: PENTOSAN POLYSULFATE SODIUM
     Route: 048
     Dates: end: 2020

REACTIONS (3)
  - Pigmentary maculopathy [Unknown]
  - Cystitis interstitial [Unknown]
  - Off label use [Unknown]

NARRATIVE: CASE EVENT DATE: 20151001
